FAERS Safety Report 7313004-6 (Version None)
Quarter: 2011Q1

REPORT INFORMATION
  Report Type: 
  Country: None (occurrence: None)
  Receive Date: 20110225
  Receipt Date: 20110222
  Transmission Date: 20110831
  Serious: Yes (Hospitalization)
  Sender: FDA-Public Use
  Company Number: TR-SP-2011-00738

PATIENT
  Age: 69 Year
  Sex: Male

DRUGS (1)
  1. IMMUCYST [Suspect]
     Indication: BLADDER TRANSITIONAL CELL CARCINOMA STAGE I
     Route: 043

REACTIONS (1)
  - SQUAMOUS CELL CARCINOMA [None]
